FAERS Safety Report 5760433-8 (Version None)
Quarter: 2008Q2

REPORT INFORMATION
  Report Type: 
  Country: None (occurrence: None)
  Receive Date: 20080602
  Receipt Date: 20080522
  Transmission Date: 20081010
  Serious: Yes (Hospitalization)
  Sender: FDA-Public Use
  Company Number: 2008BI010851

PATIENT
  Sex: Male
  Weight: 1.5876 kg

DRUGS (1)
  1. AVONEX [Suspect]
     Indication: MULTIPLE SCLEROSIS
     Dosage: 30 UG; QW; TRPL
     Route: 064
     Dates: start: 20070215, end: 20070615

REACTIONS (6)
  - BLOOD MAGNESIUM INCREASED [None]
  - CAESAREAN SECTION [None]
  - JAUNDICE NEONATAL [None]
  - MATERNAL DRUGS AFFECTING FOETUS [None]
  - PREMATURE BABY [None]
  - SMALL FOR DATES BABY [None]
